FAERS Safety Report 25263341 (Version 1)
Quarter: 2025Q2

REPORT INFORMATION
  Report Type: Spontaneous
  Country: US (occurrence: None)
  Receive Date: 20250501
  Receipt Date: 20250501
  Transmission Date: 20250717
  Serious: Yes (Death)
  Sender: FDA-CTU
  Company Number: None

PATIENT
  Age: 73 Year
  Sex: Male

DRUGS (4)
  1. AMBRISENTAN [Suspect]
     Active Substance: AMBRISENTAN
     Indication: Pulmonary arterial hypertension
     Dosage: FREQUENCY : DAILY;?
     Route: 048
     Dates: start: 20240308, end: 20241210
  2. SILDENAFIL [Suspect]
     Active Substance: SILDENAFIL
  3. WINREVAIR [Suspect]
     Active Substance: SOTATERCEPT-CSRK
  4. PREDNISONE [Suspect]
     Active Substance: PREDNISONE

REACTIONS (5)
  - Oedema [None]
  - Rash [None]
  - Pulmonary arterial hypertension [None]
  - Condition aggravated [None]
  - Hospice care [None]

NARRATIVE: CASE EVENT DATE: 20250205
